FAERS Safety Report 11163325 (Version 1)
Quarter: 2015Q2

REPORT INFORMATION
  Report Type: Spontaneous
  Country: US (occurrence: US)
  Receive Date: 20150604
  Receipt Date: 20150604
  Transmission Date: 20150821
  Serious: Yes (Other)
  Sender: FDA-Public Use
  Company Number: US-SA-2015SA048233

PATIENT
  Sex: Male

DRUGS (8)
  1. LANTUS [Suspect]
     Active Substance: INSULIN GLARGINE
     Indication: TYPE 1 DIABETES MELLITUS
     Dosage: DOSE:20 UNIT(S)
     Route: 065
  2. HUMULIN R [Concomitant]
     Active Substance: INSULIN HUMAN
     Dosage: 70/30
  3. HUMULIN R [Concomitant]
     Active Substance: INSULIN HUMAN
     Dosage: AROUND 10 UNITS, WITH MEALS
  4. LANTUS [Suspect]
     Active Substance: INSULIN GLARGINE
     Indication: TYPE 1 DIABETES MELLITUS
     Dosage: DOSE:32 UNIT(S)
     Route: 065
  5. LANTUS [Suspect]
     Active Substance: INSULIN GLARGINE
     Indication: TYPE 1 DIABETES MELLITUS
     Dosage: ~27 DAYS AGO STARTED. DOSE:28 UNIT(S)
     Route: 065
     Dates: start: 2015
  6. LANTUS [Suspect]
     Active Substance: INSULIN GLARGINE
     Indication: TYPE 1 DIABETES MELLITUS
     Dosage: DOSE:20 UNIT(S)
     Route: 065
  7. LANTUS [Suspect]
     Active Substance: INSULIN GLARGINE
     Indication: TYPE 1 DIABETES MELLITUS
     Dosage: DOSE:32 UNIT(S)
     Route: 065
  8. LANTUS [Suspect]
     Active Substance: INSULIN GLARGINE
     Indication: TYPE 1 DIABETES MELLITUS
     Dosage: ~27 DAYS AGO STARTED. DOSE:28 UNIT(S)
     Route: 065
     Dates: start: 2015

REACTIONS (4)
  - Loss of consciousness [Recovered/Resolved]
  - Injection site induration [Recovered/Resolved]
  - Blood glucose decreased [Recovered/Resolved]
  - Incorrect product storage [Unknown]
